FAERS Safety Report 7384865-X (Version None)
Quarter: 2011Q1

REPORT INFORMATION
  Report Type: 
  Country: None (occurrence: None)
  Receive Date: 20110330
  Receipt Date: 20110323
  Transmission Date: 20110831
  Serious: Yes (Other)
  Sender: FDA-Public Use
  Company Number: GB-PFIZER INC-2010077438

PATIENT
  Sex: Male

DRUGS (2)
  1. VENLAFAXINE HCL [Interacting]
  2. ZYVOX [Suspect]
     Indication: PNEUMONIA

REACTIONS (2)
  - DRUG INTERACTION [None]
  - CONVULSION [None]
